FAERS Safety Report 16701104 (Version 1)
Quarter: 2019Q3

REPORT INFORMATION
  Report Type: Spontaneous
  Country: CA (occurrence: CA)
  Receive Date: 20190814
  Receipt Date: 20190814
  Transmission Date: 20191004
  Serious: Yes (Other)
  Sender: FDA-Public Use
  Company Number: CA-CONCORDIA PHARMACEUTICALS INC.-GSH201908-001869

PATIENT
  Sex: Female

DRUGS (17)
  1. PLAQUENIL [Suspect]
     Active Substance: HYDROXYCHLOROQUINE SULFATE
     Indication: PRODUCT USED FOR UNKNOWN INDICATION
     Route: 048
     Dates: start: 2013
  2. PREDNISONE. [Suspect]
     Active Substance: PREDNISONE
     Indication: PRODUCT USED FOR UNKNOWN INDICATION
     Dosage: UNKNOWN
     Route: 048
  3. ZOLOFT [Concomitant]
     Active Substance: SERTRALINE HYDROCHLORIDE
  4. ZOPICLONE [Concomitant]
     Active Substance: ZOPICLONE
  5. ARAVA [Suspect]
     Active Substance: LEFLUNOMIDE
     Dosage: UNKNOWN
     Route: 048
     Dates: start: 2014, end: 2014
  6. REACTINE [Concomitant]
     Indication: SEASONAL ALLERGY
  7. VITAMIN C [Concomitant]
     Active Substance: ASCORBIC ACID
  8. SIMPONI [Suspect]
     Active Substance: GOLIMUMAB
     Indication: PRODUCT USED FOR UNKNOWN INDICATION
     Dosage: UNKNOWN
     Route: 058
     Dates: start: 2014, end: 2015
  9. METHOTREXATE. [Suspect]
     Active Substance: METHOTREXATE
     Indication: PRODUCT USED FOR UNKNOWN INDICATION
     Dosage: UNKNOWN
  10. LYRICA [Concomitant]
     Active Substance: PREGABALIN
  11. AMITRIPTYLINE [Concomitant]
     Active Substance: AMITRIPTYLINE
  12. AERIUS [Concomitant]
     Indication: SEASONAL ALLERGY
  13. ACYCLOVIR. [Concomitant]
     Active Substance: ACYCLOVIR
  14. ARAVA [Suspect]
     Active Substance: LEFLUNOMIDE
     Route: 065
  15. LEVOFLOXACIN. [Concomitant]
     Active Substance: LEVOFLOXACIN
  16. CONSTELLA [Concomitant]
     Active Substance: LINACLOTIDE
  17. ZOMIG [Concomitant]
     Active Substance: ZOLMITRIPTAN

REACTIONS (8)
  - Therapeutic response decreased [Unknown]
  - Alopecia [Unknown]
  - Drug intolerance [Unknown]
  - Sepsis [Unknown]
  - Drug hypersensitivity [Unknown]
  - White blood cell count decreased [Unknown]
  - Drug ineffective [Unknown]
  - Abdominal pain upper [Unknown]
